FAERS Safety Report 10264430 (Version 1)
Quarter: 2014Q2

REPORT INFORMATION
  Report Type: Spontaneous
  Country: US (occurrence: US)
  Receive Date: 20140627
  Receipt Date: 20140627
  Transmission Date: 20141212
  Serious: Yes (Death, Life-Threatening, Hospitalization, Congenital Anomaly)
  Sender: FDA-Public Use
  Company Number: US-ELI_LILLY_AND_COMPANY-US201406007483

PATIENT
  Age: 0 Day
  Sex: Female

DRUGS (1)
  1. PROZAC [Suspect]
     Indication: DEPRESSION
     Dosage: 10 MG, OTHER
     Route: 064
     Dates: start: 201110, end: 201201

REACTIONS (6)
  - Death [Fatal]
  - Dyspnoea [Unknown]
  - Hypoplastic left heart syndrome [Unknown]
  - Pulmonary hypertension [Unknown]
  - Premature baby [Unknown]
  - Foetal exposure during pregnancy [Unknown]
